FAERS Safety Report 16720529 (Version 4)
Quarter: 2020Q4

REPORT INFORMATION
  Report Type: Spontaneous
  Country: US (occurrence: US)
  Receive Date: 20190820
  Receipt Date: 20201007
  Transmission Date: 20210113
  Serious: No
  Sender: FDA-Public Use
  Company Number: US-CYCLE PHARMACEUTICALS LTD-2019-CYC-000006

PATIENT

DRUGS (3)
  1. NITYR [Suspect]
     Active Substance: NITISINONE
     Dosage: 40 MG, QD
     Route: 048
     Dates: start: 20190530
  2. NITYR [Suspect]
     Active Substance: NITISINONE
     Indication: TYROSINAEMIA
     Dosage: 40 MG, QD
     Route: 048
     Dates: start: 20190530
  3. TYREX 2 [Concomitant]

REACTIONS (4)
  - Back pain [Unknown]
  - Spinal pain [Unknown]
  - Eye disorder [Unknown]
  - Hypersensitivity [Unknown]
